FAERS Safety Report 4410671-1 (Version None)
Quarter: 2004Q3

REPORT INFORMATION
  Report Type: 
  Country: None (occurrence: None)
  Receive Date: 20040726
  Receipt Date: 20040712
  Transmission Date: 20050211
  Serious: Yes (Death, Hospitalization)
  Sender: FDA-Public Use
  Company Number: 04P-056-0266947-00

PATIENT
  Age: 1 Day
  Sex: Female
  Weight: 2.6 kg

DRUGS (6)
  1. NORVIR [Suspect]
     Indication: DRUG EXPOSURE DURING PREGNANCY
  2. FERROUS SULFATE TAB [Suspect]
     Indication: DRUG EXPOSURE DURING PREGNANCY
  3. FOLIC ACID [Suspect]
     Indication: DRUG EXPOSURE DURING PREGNANCY
  4. INVIRASE [Suspect]
     Indication: DRUG EXPOSURE DURING PREGNANCY
  5. EPIVIR [Suspect]
     Indication: DRUG EXPOSURE DURING PREGNANCY
  6. COMBIVIR [Suspect]
     Indication: DRUG EXPOSURE DURING PREGNANCY

REACTIONS (5)
  - DRUG EXPOSURE DURING PREGNANCY [None]
  - FOETAL HEART RATE ABNORMAL [None]
  - INFARCTION [None]
  - INTRA-UTERINE DEATH [None]
  - PLACENTAL DISORDER [None]
